FAERS Safety Report 21312260 (Version 1)
Quarter: 2022Q3

REPORT INFORMATION
  Report Type: Spontaneous
  Country: US (occurrence: None)
  Receive Date: 20220909
  Receipt Date: 20220909
  Transmission Date: 20221027
  Serious: No
  Sender: FDA-Public Use
  Company Number: US-FARMAPROD-202205-0876

PATIENT
  Sex: Female

DRUGS (4)
  1. OXERVATE [Suspect]
     Active Substance: CENEGERMIN-BKBJ
     Indication: Neurotrophic keratopathy
     Route: 047
     Dates: start: 20220413
  2. MELOXICAM [Concomitant]
     Active Substance: MELOXICAM
  3. VALACYCLOVIR [Concomitant]
     Active Substance: VALACYCLOVIR HYDROCHLORIDE
  4. PREDNISOLONE-NEPAFENAC [Concomitant]

REACTIONS (4)
  - Device use issue [Unknown]
  - Accidental overdose [Unknown]
  - Eye pain [Recovered/Resolved]
  - Ocular discomfort [Unknown]
